FAERS Safety Report 11779852 (Version 1)
Quarter: 2015Q4

REPORT INFORMATION
  Report Type: Spontaneous
  Country: BE (occurrence: BE)
  Receive Date: 20151125
  Receipt Date: 20151125
  Transmission Date: 20160304
  Serious: Yes (Other)
  Sender: FDA-Public Use
  Company Number: BE-B.I. PHARMACEUTICALS,INC./RIDGEFIELD-2015-BI-63785BL

PATIENT
  Age: 65 Year
  Sex: Female

DRUGS (1)
  1. VARGATEF [Suspect]
     Active Substance: NINTEDANIB
     Indication: NON-SMALL CELL LUNG CANCER
     Dosage: 400 MG
     Route: 065
     Dates: start: 20150609, end: 20150922

REACTIONS (2)
  - Non-small cell lung cancer [Unknown]
  - Ovarian cancer metastatic [Unknown]

NARRATIVE: CASE EVENT DATE: 20150922
